FAERS Safety Report 5089474-3 (Version None)
Quarter: 2006Q3

REPORT INFORMATION
  Report Type: 
  Country: None (occurrence: None)
  Receive Date: 20060822
  Receipt Date: 20060814
  Transmission Date: 20061208
  Serious: Yes (Hospitalization, Other)
  Sender: FDA-Public Use
  Company Number: 2006-08-0753

PATIENT
  Age: 41 Year
  Sex: Male
  Weight: 95 kg

DRUGS (3)
  1. PEG-INTRON [Suspect]
     Indication: HEPATITIS C
     Dosage: 150 MCG SC QW SUBCUTANEO
     Route: 058
     Dates: start: 20060608, end: 20060810
  2. REBETOL [Suspect]
     Indication: HEPATITIS C
     Dosage: 1200 MG PO QD ORAL
     Route: 048
     Dates: start: 20060608, end: 20060101
  3. CLOZAPINE [Concomitant]

REACTIONS (4)
  - HAEMOGLOBIN DECREASED [None]
  - PLATELET COUNT DECREASED [None]
  - PNEUMONIA [None]
  - PULMONARY EMBOLISM [None]
